FAERS Safety Report 11116313 (Version 1)
Quarter: 2015Q2

REPORT INFORMATION
  Report Type: Spontaneous
  Country: CH (occurrence: CH)
  Receive Date: 20150515
  Receipt Date: 20150515
  Transmission Date: 20150821
  Serious: Yes (Hospitalization)
  Sender: FDA-Public Use
  Company Number: CH-SA-2015SA062631

PATIENT
  Age: 54 Year
  Sex: Male

DRUGS (24)
  1. CLEXANE [Concomitant]
     Active Substance: ENOXAPARIN SODIUM
     Indication: THROMBOSIS PROPHYLAXIS
     Dosage: VIAL
     Route: 058
     Dates: start: 20150216, end: 20150223
  2. CLEXANE [Concomitant]
     Active Substance: ENOXAPARIN SODIUM
     Indication: THROMBOSIS PROPHYLAXIS
     Dosage: VIAL
     Route: 058
     Dates: start: 20150308, end: 20150321
  3. DORMICUM [Concomitant]
     Active Substance: MIDAZOLAM\MIDAZOLAM HYDROCHLORIDE
     Indication: PREOPERATIVE CARE
     Route: 048
     Dates: start: 20150216, end: 20150216
  4. VOLUVEN [Concomitant]
     Active Substance: HYDROXYETHYL STARCH 130/0.4
     Indication: KNEE OPERATION
     Route: 041
     Dates: start: 20150216, end: 20150216
  5. CHONDROSULF [Suspect]
     Active Substance: CHONDROITIN SULFATE (CHICKEN)
     Indication: ARTHRITIS
     Route: 048
     Dates: end: 201503
  6. DAFALGAN [Suspect]
     Active Substance: ACETAMINOPHEN
     Indication: POSTOPERATIVE ANALGESIA
     Route: 048
     Dates: start: 20150216, end: 20150224
  7. ZINACEF [Suspect]
     Active Substance: CEFUROXIME SODIUM
     Indication: KNEE OPERATION
     Dosage: VIALS
     Route: 041
     Dates: start: 20150216
  8. NEXIUM [Suspect]
     Active Substance: ESOMEPRAZOLE MAGNESIUM
     Indication: GASTROOESOPHAGEAL REFLUX PROPHYLAXIS
     Route: 048
     Dates: start: 2015
  9. RISPERIDONE. [Concomitant]
     Active Substance: RISPERIDONE
     Indication: ATTENTION DEFICIT/HYPERACTIVITY DISORDER
     Route: 048
  10. VENLAFAXINE [Concomitant]
     Active Substance: VENLAFAXINE HYDROCHLORIDE
     Indication: ATTENTION DEFICIT/HYPERACTIVITY DISORDER
     Route: 048
  11. ROPIVACAINE [Concomitant]
     Active Substance: ROPIVACAINE
     Indication: KNEE OPERATION
     Dates: start: 20150216, end: 20150216
  12. XARELTO [Suspect]
     Active Substance: RIVAROXABAN
     Indication: THROMBOSIS PROPHYLAXIS
     Dosage: 1 TOTAL
     Route: 048
     Dates: start: 20150307, end: 20150308
  13. BALDRIPARAN [Suspect]
     Active Substance: VALERIAN
     Dosage: 3 TOTAL
     Route: 048
     Dates: start: 20150224, end: 20150227
  14. VENLAFAXINE [Concomitant]
     Active Substance: VENLAFAXINE HYDROCHLORIDE
     Indication: ATTENTION DEFICIT/HYPERACTIVITY DISORDER
     Route: 048
  15. FLUDEX [Concomitant]
     Active Substance: INDAPAMIDE
     Indication: HYPERTENSION
     Route: 048
  16. RED BLOOD CELLS [Concomitant]
     Active Substance: HUMAN RED BLOOD CELL
     Indication: KNEE OPERATION
     Route: 041
     Dates: start: 20150216, end: 20150216
  17. FERRUM HAUSMANN [Concomitant]
     Active Substance: FERROUS FUMARATE
     Route: 048
     Dates: start: 2015, end: 2015
  18. OXYCONTIN [Concomitant]
     Active Substance: OXYCODONE HYDROCHLORIDE
     Indication: POSTOPERATIVE ANALGESIA
     Dosage: 2 TOTAL
     Route: 048
     Dates: start: 20150217, end: 20150218
  19. CARBOSTESIN ^ICN^ [Concomitant]
     Indication: KNEE OPERATION
     Dosage: VIALS
     Dates: start: 20150216, end: 20150216
  20. NOVALGIN [Suspect]
     Active Substance: METAMIZOLE SODIUM
     Indication: POSTOPERATIVE ANALGESIA
     Route: 048
     Dates: start: 20150216, end: 20150317
  21. ZOLPIDEM [Suspect]
     Active Substance: ZOLPIDEM\ZOLPIDEM TARTRATE
     Route: 048
     Dates: start: 20150227, end: 20150308
  22. FRAGMIN [Suspect]
     Active Substance: DALTEPARIN SODIUM
     Indication: THROMBOSIS PROPHYLAXIS
     Dosage: VIALS
     Route: 058
     Dates: start: 20150224, end: 20150306
  23. VALVERDE [Concomitant]
     Active Substance: HERBALS
     Route: 048
     Dates: start: 20150223, end: 20150223
  24. SINTROM [Suspect]
     Active Substance: ACENOCOUMAROL
     Indication: THROMBOSIS PROPHYLAXIS
     Route: 048
     Dates: start: 20150222, end: 20150224

REACTIONS (8)
  - Antinuclear antibody positive [Unknown]
  - Jaundice [Recovering/Resolving]
  - Hepatitis cholestatic [Recovering/Resolving]
  - Abdominal tenderness [Recovering/Resolving]
  - Fatigue [Recovering/Resolving]
  - Constipation [Recovering/Resolving]
  - Nausea [Recovering/Resolving]
  - Vomiting [Recovering/Resolving]

NARRATIVE: CASE EVENT DATE: 201503
